FAERS Safety Report 5208773-5 (Version None)
Quarter: 2007Q1

REPORT INFORMATION
  Report Type: 
  Country: None (occurrence: None)
  Receive Date: 20070111
  Receipt Date: 20070111
  Transmission Date: 20070707
  Serious: Yes (Other)
  Sender: FDA-Public Use
  Company Number: None

PATIENT
  Age: 69 Year
  Sex: Female

DRUGS (10)
  1. REVLIMID [Suspect]
     Indication: MULTIPLE MYELOMA
     Dosage: 25 MG DAILY 21D/28D PO
     Route: 048
  2. DEXAMETHASONE [Concomitant]
  3. PROCRIT [Concomitant]
  4. ACETAMINOPHEN AND OXYCODONE HCL [Concomitant]
  5. ATENOLOL [Concomitant]
  6. ISORDIL [Concomitant]
  7. GABAPENTIN [Concomitant]
  8. FEMARA [Concomitant]
  9. OMEPRAZOLE [Concomitant]
  10. NIFEDIPINE [Concomitant]

REACTIONS (2)
  - NEUTROPENIA [None]
  - THROMBOCYTOPENIA [None]
